FAERS Safety Report 21644316 (Version 2)
Quarter: 2022Q4

REPORT INFORMATION
  Report Type: Spontaneous
  Country: DE (occurrence: None)
  Receive Date: 20221125
  Receipt Date: 20221129
  Transmission Date: 20230113
  Serious: Yes (Other)
  Sender: FDA-Public Use
  Company Number: 2022A387141

PATIENT
  Age: 80 Year
  Sex: Female

DRUGS (2)
  1. ACALABRUTINIB [Suspect]
     Active Substance: ACALABRUTINIB
     Indication: Chronic lymphocytic leukaemia
     Route: 048
     Dates: start: 20210902
  2. IBRUTINIB [Concomitant]
     Active Substance: IBRUTINIB
     Dates: start: 20210701

REACTIONS (6)
  - Vision blurred [Unknown]
  - Invasive ductal breast carcinoma [Unknown]
  - Muscle spasms [Unknown]
  - Diarrhoea [Unknown]
  - Dizziness [Unknown]
  - Haematoma [Unknown]

NARRATIVE: CASE EVENT DATE: 20220801
